FAERS Safety Report 4767102-1 (Version None)
Quarter: 2005Q3

REPORT INFORMATION
  Report Type: 
  Country: None (occurrence: None)
  Receive Date: 20050913
  Receipt Date: 20050907
  Transmission Date: 20060218
  Serious: Yes (Death)
  Sender: FDA-Public Use
  Company Number: 2005AP04769

PATIENT
  Age: 26369 Day
  Sex: Male

DRUGS (6)
  1. TENORETIC 100 [Suspect]
     Indication: HYPERTENSION
     Dosage: 100 + 25 MG DAILY
     Route: 048
     Dates: start: 20040727
  2. NORVASC [Suspect]
     Indication: HYPERTENSION
     Route: 048
     Dates: start: 20050117
  3. PEPCID [Concomitant]
  4. ECOTRIN [Concomitant]
  5. ASPIRIN [Concomitant]
     Dates: start: 19950101
  6. LEVITRA [Concomitant]
     Indication: ERECTILE DYSFUNCTION
     Route: 048
     Dates: start: 20040917

REACTIONS (2)
  - CARDIAC DISORDER [None]
  - CORONARY ARTERY DISEASE [None]
